FAERS Safety Report 18374315 (Version 2)
Quarter: 2022Q3

REPORT INFORMATION
  Report Type: Spontaneous
  Country: US (occurrence: US)
  Receive Date: 20201013
  Receipt Date: 20220726
  Transmission Date: 20221026
  Serious: Yes (Other)
  Sender: FDA-Public Use
  Company Number: US-SAARTEMIS-SAC202010060374

PATIENT
  Age: 48 Year
  Sex: Male

DRUGS (1)
  1. ZANTAC [Suspect]
     Active Substance: RANITIDINE HYDROCHLORIDE
     Dosage: 75 MG, QD
     Dates: start: 199601, end: 201601

REACTIONS (1)
  - Renal cancer stage IV [Unknown]

NARRATIVE: CASE EVENT DATE: 20120216
